FAERS Safety Report 6058414-2 (Version None)
Quarter: 2009Q1

REPORT INFORMATION
  Report Type: 
  Country: None (occurrence: None)
  Receive Date: 20090128
  Receipt Date: 20090128
  Transmission Date: 20090719
  Serious: Yes (Hospitalization)
  Sender: FDA-Public Use
  Company Number: None

PATIENT
  Age: 68 Year
  Sex: Male
  Weight: 56.6996 kg

DRUGS (10)
  1. VELCADE [Suspect]
     Indication: HEAD AND NECK CANCER
     Dosage: 2.4MG 2X/WK IV PUSH
     Route: 042
     Dates: start: 20081103, end: 20081215
  2. CISPLATIN [Suspect]
     Dosage: 55MG 1X/WK IV PB
     Route: 042
     Dates: start: 20081103, end: 20081215
  3. AMLODIPINE [Concomitant]
  4. CIPROFLOXACIN HCL [Concomitant]
  5. LORAZEPAM [Concomitant]
  6. METRONIDAZOLE [Concomitant]
  7. ZOFRAN [Concomitant]
  8. PERCOCET [Concomitant]
  9. COMPAZINE [Concomitant]
  10. MAGNESIUM OXIDE [Concomitant]

REACTIONS (10)
  - ASTHENIA [None]
  - CONSTIPATION [None]
  - DEHYDRATION [None]
  - DEPRESSION [None]
  - DISTURBANCE IN ATTENTION [None]
  - DIZZINESS [None]
  - OROPHARYNGEAL PAIN [None]
  - PAIN IN EXTREMITY [None]
  - REFUSAL OF TREATMENT BY PATIENT [None]
  - WEIGHT DECREASED [None]
